FAERS Safety Report 4758894-6 (Version None)
Quarter: 2005Q3

REPORT INFORMATION
  Report Type: 
  Country: None (occurrence: None)
  Receive Date: 20050831
  Receipt Date: 20050819
  Transmission Date: 20060218
  Serious: Yes (Hospitalization)
  Sender: FDA-Public Use
  Company Number: GXBR2005US01223

PATIENT
  Age: 61 Year
  Sex: Male
  Weight: 69.8 kg

DRUGS (7)
  1. RIBAVIRIN [Suspect]
     Indication: HEPATITIS C
     Dosage: 1000 MG, QD, ORAL
     Route: 048
     Dates: start: 20041206, end: 20050520
  2. PEG-INTRON [Suspect]
     Indication: HEPATITIS C
     Dosage: SEE IMAGE
     Dates: start: 20041206, end: 20050301
  3. PEG-INTRON [Suspect]
     Indication: HEPATITIS C
     Dosage: SEE IMAGE
     Dates: start: 20050301, end: 20050515
  4. FIORINAL [Concomitant]
  5. AMBIEN [Concomitant]
  6. MARINOL [Concomitant]
  7. SOMA [Concomitant]

REACTIONS (40)
  - ABSCESS LIMB [None]
  - AMNESIA [None]
  - ANAEMIA [None]
  - BLISTER [None]
  - BLOOD DISORDER [None]
  - BLOOD FIBRINOGEN INCREASED [None]
  - BLOOD LACTATE DEHYDROGENASE INCREASED [None]
  - BONE MARROW DEPRESSION [None]
  - BURGLARY VICTIM [None]
  - CELLULITIS [None]
  - COMA [None]
  - DEPRESSED LEVEL OF CONSCIOUSNESS [None]
  - DEPRESSED MOOD [None]
  - DISCOMFORT [None]
  - DRUG EFFECT DECREASED [None]
  - FALL [None]
  - FIBRIN D DIMER INCREASED [None]
  - GAIT DISTURBANCE [None]
  - HYPOKALAEMIA [None]
  - HYPONATRAEMIA [None]
  - HYPOVOLAEMIA [None]
  - INDURATION [None]
  - INTENTIONAL MISUSE [None]
  - IRRITABILITY [None]
  - JOINT RANGE OF MOTION DECREASED [None]
  - LACERATION [None]
  - LEUKOCYTOSIS [None]
  - LOSS OF CONSCIOUSNESS [None]
  - MENTAL IMPAIRMENT [None]
  - MUSCULOSKELETAL STIFFNESS [None]
  - NEUROLOGICAL SYMPTOM [None]
  - OXYGEN SATURATION DECREASED [None]
  - PERSONALITY CHANGE [None]
  - PYREXIA [None]
  - SKIN EXFOLIATION [None]
  - SKIN WRINKLING [None]
  - SOMNOLENCE [None]
  - STAPHYLOCOCCAL INFECTION [None]
  - SWELLING [None]
  - WOUND INFECTION [None]
